FAERS Safety Report 9698168 (Version 1)
Quarter: 2013Q4

REPORT INFORMATION
  Report Type: Spontaneous
  Country: US (occurrence: None)
  Receive Date: 20131114
  Receipt Date: 20131114
  Transmission Date: 20140711
  Serious: Yes (Other)
  Sender: FDA-Public Use
  Company Number: 2013038891

PATIENT
  Age: 52 Year
  Sex: Female
  Weight: 71.22 kg

DRUGS (17)
  1. ZEMAIRA [Suspect]
     Indication: ALPHA-1 ANTI-TRYPSIN DEFICIENCY
     Dosage: 60 MG/KG 1X/WEEK, 0.08 ML/KG/MIN
     Route: 042
     Dates: start: 20131107
  2. ADVIL PM (IBUPROFEN) [Concomitant]
  3. CYMBALTA (DULOXETINE HYDROCHLORIDE) [Concomitant]
  4. ZANTAC (RANITIDINE HYDROCHLORIDE) [Concomitant]
  5. DIPHENHYDRAMINE [Concomitant]
  6. SODIUM CHLORIDE [Concomitant]
  7. EPI PEN (EPINEPHRINE) [Concomitant]
  8. LMX (LIDOCAINE) [Concomitant]
  9. ALBUTEROL (SALBUTAMOL) [Concomitant]
  10. TYLENOL PM [Concomitant]
  11. FLEXERIL (CYCLOBENZAPRINE HYDROCHLORIDE) [Concomitant]
  12. PROAIR (SALBUTAMOL SULFATE) [Concomitant]
  13. NAPROXEN [Concomitant]
  14. VOLTAREN (DICLOFENAC) [Concomitant]
  15. LIDODERM (LIDOCAINE) [Concomitant]
  16. ALKA SELTZER [Concomitant]
  17. SYMBICORT [Concomitant]

REACTIONS (3)
  - Chest pain [None]
  - Bradycardia [None]
  - Blood creatine phosphokinase abnormal [None]
